FAERS Safety Report 6546074-3 (Version None)
Quarter: 2010Q1

REPORT INFORMATION
  Report Type: 
  Country: None (occurrence: None)
  Receive Date: 20100119
  Receipt Date: 20100104
  Transmission Date: 20100710
  Serious: Yes (Life-Threatening, Hospitalization, Other)
  Sender: FDA-Public Use
  Company Number: AVE_01241_2009

PATIENT
  Sex: Female
  Weight: 90.7194 kg

DRUGS (6)
  1. CLONIDINE [Suspect]
     Indication: BLOOD PRESSURE INCREASED
     Dosage: (0.2 MG QD VIA A 1/WEEKLY PATCH TRANSDERMAL)
     Route: 062
     Dates: start: 20091029, end: 20091110
  2. DIOVAN [Concomitant]
  3. SYNTHROID [Concomitant]
  4. POTASSIUM [Concomitant]
  5. IBUPROFEN [Concomitant]
  6. LEXAPRO [Concomitant]

REACTIONS (5)
  - BRADYCARDIA [None]
  - DRY MOUTH [None]
  - HEADACHE [None]
  - HYPERTENSIVE CRISIS [None]
  - SYSTOLIC HYPERTENSION [None]
